FAERS Safety Report 20302232 (Version 1)
Quarter: 2022Q1

REPORT INFORMATION
  Report Type: Spontaneous
  Country: US (occurrence: None)
  Receive Date: 20220106
  Receipt Date: 20220106
  Transmission Date: 20220423
  Serious: No
  Sender: FDA-Public Use
  Company Number: 2021A900325

PATIENT

DRUGS (1)
  1. CALQUENCE [Suspect]
     Active Substance: ACALABRUTINIB
     Route: 048

REACTIONS (5)
  - Hunger [Unknown]
  - Neutrophil count abnormal [Unknown]
  - Weight increased [Unknown]
  - Ear disorder [Unknown]
  - Epistaxis [Unknown]
